FAERS Safety Report 8947680 (Version 2)
Quarter: 2013Q1

REPORT INFORMATION
  Report Type: Report from Study
  Country: US (occurrence: US)
  Receive Date: 20121205
  Receipt Date: 20130125
  Transmission Date: 20140127
  Serious: Yes (Other)
  Sender: FDA-Public Use
  Company Number: US-ROCHE-1163103

PATIENT
  Sex: 0

DRUGS (3)
  1. RITUXIMAB [Suspect]
     Indication: MANTLE CELL LYMPHOMA
     Dosage: ON DAY 1 OF A 28 DAY CYCLE
     Route: 042
  2. CLADRIBINE [Suspect]
     Indication: MANTLE CELL LYMPHOMA
     Dosage: 1-5 OF A 28 DAY CYCLE
     Route: 042
  3. TEMSIROLIMUS [Suspect]
     Indication: MANTLE CELL LYMPHOMA
     Route: 042

REACTIONS (7)
  - Thrombocytopenia [Unknown]
  - Lymphopenia [Unknown]
  - Neutropenia [Unknown]
  - Anaemia [Unknown]
  - Cytokine release syndrome [Unknown]
  - Thrombosis [Unknown]
  - Pneumonitis [Unknown]
